FAERS Safety Report 5634451-4 (Version None)
Quarter: 2008Q1

REPORT INFORMATION
  Report Type: 
  Country: None (occurrence: None)
  Receive Date: 20080222
  Receipt Date: 20080212
  Transmission Date: 20080703
  Serious: Yes (Death, Hospitalization)
  Sender: FDA-Public Use
  Company Number: JP-JNJFOC-20061205692

PATIENT
  Sex: Female
  Weight: 41 kg

DRUGS (10)
  1. REMICADE [Suspect]
     Route: 042
  2. REMICADE [Suspect]
     Route: 042
  3. REMICADE [Suspect]
     Route: 042
  4. REMICADE [Suspect]
     Route: 042
  5. REMICADE [Suspect]
     Indication: RHEUMATOID ARTHRITIS
     Route: 042
  6. D CHLORPHENIRAMINE MALEATE [Concomitant]
     Route: 048
  7. RISEDRONATE SODIUM [Concomitant]
     Route: 048
  8. VOLTAREN [Concomitant]
     Dosage: ROUTE ^PR^
     Route: 054
  9. METHOTREXATE [Concomitant]
     Indication: RHEUMATOID ARTHRITIS
     Route: 048
  10. CLINORIL [Concomitant]
     Indication: RHEUMATOID ARTHRITIS
     Route: 048

REACTIONS (2)
  - GASTRIC NEOPLASM [None]
  - HAEMORRHAGE [None]
